FAERS Safety Report 24451987 (Version 4)
Quarter: 2024Q4

REPORT INFORMATION
  Report Type: Spontaneous
  Country: US (occurrence: US)
  Receive Date: 20241017
  Receipt Date: 20241115
  Transmission Date: 20250115
  Serious: No
  Sender: PFIZER
  Company Number: US-PFIZER INC-PV202400131041

PATIENT
  Age: 53 Year
  Sex: Female

DRUGS (1)
  1. IBRANCE [Suspect]
     Active Substance: PALBOCICLIB
     Dosage: UNK

REACTIONS (7)
  - Fatigue [Unknown]
  - Diarrhoea [Unknown]
  - Gait disturbance [Unknown]
  - Pain [Unknown]
  - Somnolence [Unknown]
  - Localised infection [Unknown]
  - Nausea [Unknown]
